FAERS Safety Report 7831696-X (Version None)
Quarter: 2011Q4

REPORT INFORMATION
  Report Type: 
  Country: None (occurrence: None)
  Receive Date: 20111019
  Receipt Date: 20111004
  Transmission Date: 20120403
  Serious: Yes (Hospitalization)
  Sender: FDA-Public Use
  Company Number: NL-006492

PATIENT
  Age: 27 Year
  Sex: Female

DRUGS (1)
  1. DESMOPRESSIN ACETATE [Suspect]
     Indication: ENURESIS
     Dosage: (0.2 MG QD ORAL)
     Route: 048

REACTIONS (12)
  - C-REACTIVE PROTEIN INCREASED [None]
  - WHITE BLOOD CELL COUNT INCREASED [None]
  - ACTIVATED PARTIAL THROMBOPLASTIN TIME PROLONGED [None]
  - ARTERIAL THROMBOSIS [None]
  - THROMBOSIS [None]
  - OVERDOSE [None]
  - BLOOD CREATININE DECREASED [None]
  - PROTHROMBIN TIME PROLONGED [None]
  - ABDOMINAL PAIN [None]
  - DIARRHOEA [None]
  - BLOOD SODIUM INCREASED [None]
  - BLOOD LACTIC ACID INCREASED [None]
